FAERS Safety Report 8358862 (Version 2)
Quarter: 2014Q3

REPORT INFORMATION
  Report Type: Spontaneous
  Country: US (occurrence: None)
  Receive Date: 20120117
  Receipt Date: 20140815
  Transmission Date: 20150326
  Serious: Yes (Other)
  Sender: FDA-Public Use
  Company Number: ADR-2010-9103

PATIENT
  Age: 63 Year
  Sex: Female

DRUGS (3)
  1. BUPIVACAINE HYDROCHLORIDE. [Concomitant]
     Active Substance: BUPIVACAINE HYDROCHLORIDE
  2. BACLOFEN INTRATHECAL (150 MCG/ML) [Suspect]
     Active Substance: BACLOFEN
  3. DILAUDID [Concomitant]
     Active Substance: HYDROMORPHONE HYDROCHLORIDE

REACTIONS (9)
  - Intracranial hypotension [None]
  - Therapeutic response decreased [None]
  - Implant site extravasation [None]
  - Drug ineffective [None]
  - Seroma [None]
  - Drug withdrawal syndrome [None]
  - Hypoaesthesia [None]
  - Pain [None]
  - Post procedural complication [None]

NARRATIVE: CASE EVENT DATE: 20100726
